FAERS Safety Report 23205038 (Version 1)
Quarter: 2023Q4

REPORT INFORMATION
  Report Type: Spontaneous
  Country: IR (occurrence: IR)
  Receive Date: 20231120
  Receipt Date: 20231120
  Transmission Date: 20240110
  Serious: Yes (Other)
  Sender: FDA-Public Use
  Company Number: IR-SUN PHARMACEUTICAL INDUSTRIES LTD-2023RR-418497

PATIENT
  Age: 39 Year
  Sex: Female

DRUGS (2)
  1. ZOLPIDEM [Suspect]
     Active Substance: ZOLPIDEM TARTRATE
     Indication: Anxiety
     Dosage: 5 MG PER NIGHT
     Route: 065
  2. ZOLPIDEM [Suspect]
     Active Substance: ZOLPIDEM TARTRATE
     Dosage: 10 MG PER NIGHT
     Route: 065

REACTIONS (10)
  - Drug dependence [Unknown]
  - Irritability [Recovering/Resolving]
  - Anxiety [Recovering/Resolving]
  - Decreased appetite [Recovering/Resolving]
  - Amnesia [Recovering/Resolving]
  - Balance disorder [Recovering/Resolving]
  - Depression [Recovering/Resolving]
  - Drug abuse [Unknown]
  - Withdrawal syndrome [Unknown]
  - Seizure [Unknown]
